FAERS Safety Report 24042409 (Version 7)
Quarter: 2024Q3

REPORT INFORMATION
  Report Type: Report from Study
  Country: NL (occurrence: NL)
  Receive Date: 20240702
  Receipt Date: 20240920
  Transmission Date: 20241017
  Serious: Yes (Other)
  Sender: ABBVIE
  Company Number: NL-ABBVIE-5820875

PATIENT
  Sex: Female

DRUGS (17)
  1. CARBIDOPA\LEVODOPA [Suspect]
     Active Substance: CARBIDOPA\LEVODOPA
     Indication: Parkinson^s disease
     Dosage: REMAINS AT 24 HOURS
     Route: 050
  2. CARBIDOPA\LEVODOPA [Suspect]
     Active Substance: CARBIDOPA\LEVODOPA
     Dosage: REMAINS AT 24 HOURS
     Route: 050
  3. CARBIDOPA\LEVODOPA [Suspect]
     Active Substance: CARBIDOPA\LEVODOPA
     Dosage: MD: 3.0ML, CD: 3.1ML/H, ED: 2.50ML, DURATION TEXT: REMAINS AT 24 HOURS
     Route: 050
     Dates: start: 20240307, end: 20240507
  4. CARBIDOPA\LEVODOPA [Suspect]
     Active Substance: CARBIDOPA\LEVODOPA
     Dosage: MD: 3.0ML, CD: 3.1ML/H, ED: 2.50ML, DURATION TEXT: REMAINS AT 24 HOURS
     Route: 050
     Dates: start: 20240507, end: 20240530
  5. CARBIDOPA\LEVODOPA [Suspect]
     Active Substance: CARBIDOPA\LEVODOPA
     Dosage: CND: 1.5ML/H, END: 2.50ML, DURATION TEXT: GOES TO 24 HOURS
     Route: 050
     Dates: start: 20240119, end: 20240130
  6. CARBIDOPA\LEVODOPA [Suspect]
     Active Substance: CARBIDOPA\LEVODOPA
     Dosage: REMAINS AT 24 HOURS
     Route: 050
  7. CARBIDOPA\LEVODOPA [Suspect]
     Active Substance: CARBIDOPA\LEVODOPA
     Dosage: MD:3.0 ML, CD: 3.6ML/H, ED:3.5ML, ND:5.0 ML, CND: 2.1ML/H, END: 3.50M, DURATION TEXT: REMAINS AT ...
     Route: 050
     Dates: start: 20240530, end: 20240619
  8. CARBIDOPA\LEVODOPA [Suspect]
     Active Substance: CARBIDOPA\LEVODOPA
     Dosage: MD:3.0 ML, CD: 3.8ML/H, ED:3.5ML, ND:5.0 ML, CND: 2.3ML/H, END: 3.50ML, REMAINS AT 24 HOURS
     Route: 050
     Dates: start: 20240619
  9. CARBIDOPA\LEVODOPA [Suspect]
     Active Substance: CARBIDOPA\LEVODOPA
     Dosage: MD: 3.0ML, CD: 3.1ML/H, ED: 2.50ML, ND: 4.5ML, CND: 1.7ML/H, END: 2.50ML, DURATION TEXT: REMAINS ...
     Route: 050
     Dates: start: 20240130, end: 20240307
  10. CARBIDOPA\LEVODOPA [Suspect]
     Active Substance: CARBIDOPA\LEVODOPA
     Dosage: REMAINS AT 24 HOURS
     Route: 050
     Dates: start: 20190409
  11. CARBIDOPA\LEVODOPA [Suspect]
     Active Substance: CARBIDOPA\LEVODOPA
     Dosage: REMAINS AT 24 HOURS
     Route: 050
  12. OXAZEPAM [Concomitant]
     Active Substance: OXAZEPAM
     Indication: Product used for unknown indication
     Dosage: TIME INTERVAL: 0.16666667 DAYS
  13. OXAZEPAM [Concomitant]
     Active Substance: OXAZEPAM
     Indication: Product used for unknown indication
     Dosage: FORM STRENGTH: 10 MG
     Route: 048
  14. XANAX [Concomitant]
     Active Substance: ALPRAZOLAM
     Indication: Product used for unknown indication
  15. MIRTAZAPINE [Concomitant]
     Active Substance: MIRTAZAPINE
     Indication: Product used for unknown indication
  16. BENSERAZIDE HYDROCHLORIDE\LEVODOPA [Concomitant]
     Active Substance: BENSERAZIDE HYDROCHLORIDE\LEVODOPA
     Indication: Parkinson^s disease
     Dosage: TIME INTERVAL: 0.33333333 DAYS
  17. POLYETHYLENE GLYCOLS [Concomitant]
     Active Substance: POLYETHYLENE GLYCOLS
     Indication: Gastrointestinal motility disorder

REACTIONS (33)
  - Seizure [Not Recovered/Not Resolved]
  - Dyspnoea [Not Recovered/Not Resolved]
  - Muscle rigidity [Not Recovered/Not Resolved]
  - Palpitations [Not Recovered/Not Resolved]
  - Posture abnormal [Not Recovered/Not Resolved]
  - Stress [Not Recovered/Not Resolved]
  - Self esteem decreased [Not Recovered/Not Resolved]
  - Heart rate increased [Not Recovered/Not Resolved]
  - Asthenia [Not Recovered/Not Resolved]
  - On and off phenomenon [Recovered/Resolved]
  - Malaise [Not Recovered/Not Resolved]
  - On and off phenomenon [Not Recovered/Not Resolved]
  - Unevaluable event [Not Recovered/Not Resolved]
  - Musculoskeletal disorder [Not Recovered/Not Resolved]
  - Tremor [Not Recovered/Not Resolved]
  - Abnormal dreams [Not Recovered/Not Resolved]
  - Anxiety [Recovering/Resolving]
  - Shock [Unknown]
  - Tension [Not Recovered/Not Resolved]
  - Dyskinesia [Recovered/Resolved]
  - Unevaluable event [Not Recovered/Not Resolved]
  - Speech disorder [Not Recovered/Not Resolved]
  - Bowel movement irregularity [Not Recovered/Not Resolved]
  - Reduced facial expression [Not Recovered/Not Resolved]
  - Panic reaction [Not Recovered/Not Resolved]
  - Restlessness [Not Recovered/Not Resolved]
  - Muscle spasms [Recovering/Resolving]
  - Feeling abnormal [Not Recovered/Not Resolved]
  - Dystonia [Not Recovered/Not Resolved]
  - Drug ineffective [Not Recovered/Not Resolved]
  - On and off phenomenon [Recovered/Resolved]
  - Dyskinesia [Not Recovered/Not Resolved]
  - Volvulus of small bowel [Not Recovered/Not Resolved]

NARRATIVE: CASE EVENT DATE: 20240101
